FAERS Safety Report 7500123-4 (Version None)
Quarter: 2011Q2

REPORT INFORMATION
  Report Type: 
  Country: None (occurrence: None)
  Receive Date: 20110524
  Receipt Date: 20110404
  Transmission Date: 20111010
  Serious: No
  Sender: FDA-Public Use
  Company Number: US-NOVEN-11US002198

PATIENT
  Sex: Male

DRUGS (1)
  1. DAYTRANA [Suspect]
     Indication: PRODUCT USED FOR UNKNOWN INDICATION
     Dosage: UNK, 1 PATCH QD FOR 9 HRS
     Route: 062

REACTIONS (3)
  - APPLICATION SITE URTICARIA [None]
  - PRODUCT QUALITY ISSUE [None]
  - APPLICATION SITE ERYTHEMA [None]
